FAERS Safety Report 8930537 (Version 1)
Quarter: 2012Q4

REPORT INFORMATION
  Report Type: 
  Country: MX (occurrence: MX)
  Receive Date: 20121128
  Receipt Date: 20121128
  Transmission Date: 20130627
  Serious: Yes (Hospitalization, Other)
  Sender: FDA-Public Use
  Company Number: PHHY2012MX108236

PATIENT
  Age: 84 Year
  Sex: Male

DRUGS (4)
  1. ONBREZ [Suspect]
     Indication: CHRONIC OBSTRUCTIVE PULMONARY DISEASE
     Dosage: 150 ug, BID (2 shooting)
     Dates: end: 20121107
  2. SERETIDE [Concomitant]
     Indication: BRONCHIAL DISORDER
     Dosage: 4 DF, QD
     Dates: start: 20121109
  3. AMBROXOL [Concomitant]
     Indication: INCREASED UPPER AIRWAY SECRETION
     Dosage: 15 ml, QD
     Dates: start: 20121109
  4. LEVOFLOXACINE [Concomitant]
     Indication: PNEUMONIA
     Dosage: UNK
     Dates: start: 20121109

REACTIONS (4)
  - Pneumonia [Recovered/Resolved]
  - Dyspnoea [Recovered/Resolved]
  - Pyrexia [Recovered/Resolved]
  - Drug prescribing error [Unknown]
